FAERS Safety Report 18043270 (Version 3)
Quarter: 2020Q3

REPORT INFORMATION
  Report Type: Report from Study
  Country: IT (occurrence: IT)
  Receive Date: 20200720
  Receipt Date: 20200901
  Transmission Date: 20201103
  Serious: Yes (Hospitalization)
  Sender: FDA-Public Use
  Company Number: IT-BAXTER-2020BAX014667

PATIENT
  Age: 57 Year
  Sex: Female
  Weight: 75.5 kg

DRUGS (8)
  1. TRASTUZUMAB. [Suspect]
     Active Substance: TRASTUZUMAB
     Indication: BREAST CANCER
     Dosage: DATE OF MOST RECENT DOSE OF TRASTUZUMAB PRIOR TO ADVERSE EVENT ONSET:10/APR/2020 (DOSE: 576)
     Route: 041
     Dates: start: 20200410
  2. ATEZOLIZUMAB. [Suspect]
     Active Substance: ATEZOLIZUMAB
     Indication: BREAST CANCER
     Dosage: PATIENT RECEIVED MOST RECENT DOSE OF ATEZOLIZUMAB BEFORE SAE ON 21FEB2020 ON DAY 1 EVERY 3 WEEKS
     Route: 042
     Dates: start: 20200130
  3. TAPAZOLE [Concomitant]
     Active Substance: METHIMAZOLE
     Indication: PYREXIA
     Route: 065
     Dates: start: 20200122
  4. DOXIL [Suspect]
     Active Substance: DOXORUBICIN HYDROCHLORIDE
     Indication: BREAST CANCER
     Dosage: ON DAY 1 EVERY 3 WEEKS IN ARM ACY FOLLOWED BY HPCT LAST DOSE ADMINISTRATION 109.2 MG
     Route: 042
     Dates: start: 20200130, end: 20200320
  5. TAPAZOLE [Concomitant]
     Active Substance: METHIMAZOLE
     Route: 065
     Dates: start: 20200122
  6. ENDOXAN BAXTER [Suspect]
     Active Substance: CYCLOPHOSPHAMIDE
     Indication: BREAST CANCER
     Dosage: ON DAY 1 EVERY 3 WEEKS IN ARM ACY FOLLOWED BY HPCT
     Route: 065
     Dates: start: 20200130, end: 20200320
  7. PERTUZUMAB. [Suspect]
     Active Substance: PERTUZUMAB
     Indication: BREAST CANCER
     Dosage: DATE OF MOST RECENT DOSE OF PERTUZUMAB PRIOR TO ADVERSE EVENT ONSET: 10/APR/2020 (DOSE: 840)
     Route: 042
     Dates: start: 20200410
  8. PARACETAMOL [Concomitant]
     Active Substance: ACETAMINOPHEN
     Indication: PYREXIA
     Route: 065
     Dates: start: 20200308, end: 20200308

REACTIONS (3)
  - Febrile neutropenia [Recovered/Resolved with Sequelae]
  - Pyrexia [Not Recovered/Not Resolved]
  - Infusion related reaction [Recovered/Resolved]

NARRATIVE: CASE EVENT DATE: 20200309
